FAERS Safety Report 4596394-7 (Version None)
Quarter: 2005Q1

REPORT INFORMATION
  Report Type: 
  Country: None (occurrence: None)
  Receive Date: 20050228
  Receipt Date: 20050211
  Transmission Date: 20050727
  Serious: Yes (Hospitalization)
  Sender: FDA-Public Use
  Company Number: 2005BI003425

PATIENT
  Sex: Male

DRUGS (1)
  1. AVONEX [Suspect]
     Indication: MULTIPLE SCLEROSIS
     Dosage: 30 UG; QW; IM
     Route: 030
     Dates: start: 20001001, end: 20031001

REACTIONS (4)
  - ASTHENIA [None]
  - DEPRESSION [None]
  - DIFFICULTY IN WALKING [None]
  - INFLUENZA LIKE ILLNESS [None]
